FAERS Safety Report 13287443 (Version 1)
Quarter: 2017Q1

REPORT INFORMATION
  Report Type: Report from Study
  Country: CA (occurrence: CA)
  Receive Date: 20170302
  Receipt Date: 20170302
  Transmission Date: 20170428
  Serious: Yes (Hospitalization)
  Sender: FDA-Public Use
  Company Number: CA-HLSUS-2016-CA-000274

PATIENT
  Age: 64 Year
  Sex: Male

DRUGS (5)
  1. CLOZAPINE. [Suspect]
     Active Substance: CLOZAPINE
     Indication: SCHIZOPHRENIA
     Dosage: DOSE DECREASED POST HOSPITALIZATION
     Route: 048
     Dates: start: 19920711
  2. FLOMAX [Concomitant]
     Active Substance: TAMSULOSIN HYDROCHLORIDE
     Route: 048
  3. RISPERDAL [Concomitant]
     Active Substance: RISPERIDONE
     Route: 048
  4. DIAZEPAM. [Concomitant]
     Active Substance: DIAZEPAM
     Route: 048
  5. COLACE [Concomitant]
     Active Substance: DOCUSATE SODIUM
     Route: 048

REACTIONS (1)
  - Osteoarthritis [Recovered/Resolved]
